FAERS Safety Report 8382286 (Version 7)
Quarter: 2013Q3

REPORT INFORMATION
  Report Type: Spontaneous
  Country: US (occurrence: US)
  Receive Date: 20120201
  Receipt Date: 20130926
  Transmission Date: 20140515
  Serious: Yes (Hospitalization, Congenital Anomaly, Other)
  Sender: FDA-Public Use
  Company Number: US-JNJFOC-20120112015

PATIENT
  Sex: Male

DRUGS (5)
  1. TOPOMAX [Suspect]
     Indication: FOETAL EXPOSURE DURING PREGNANCY
     Route: 064
  2. AVONEX [Suspect]
     Indication: FOETAL EXPOSURE DURING PREGNANCY
     Route: 064
  3. WELLBUTRIN XL [Suspect]
     Indication: FOETAL EXPOSURE DURING PREGNANCY
     Route: 064
  4. CELEXA [Suspect]
     Indication: FOETAL EXPOSURE DURING PREGNANCY
     Route: 064
  5. PROVIGIL [Suspect]
     Indication: FOETAL EXPOSURE DURING PREGNANCY
     Route: 064

REACTIONS (11)
  - Attention deficit/hyperactivity disorder [Unknown]
  - Jaundice neonatal [Unknown]
  - Cleft palate [Recovering/Resolving]
  - Cleft lip [Recovering/Resolving]
  - Vitreous degeneration [Unknown]
  - Ventricular septal defect [Recovered/Resolved]
  - Otitis media chronic [Recovering/Resolving]
  - Myopia [Unknown]
  - Depression [Unknown]
  - Stress [Unknown]
  - Systolic hypertension [Unknown]
